FAERS Safety Report 11801239 (Version 1)
Quarter: 2015Q4

REPORT INFORMATION
  Report Type: Spontaneous
  Country: RU (occurrence: RU)
  Receive Date: 20151204
  Receipt Date: 20151204
  Transmission Date: 20160305
  Serious: Yes (Other)
  Sender: FDA-Public Use
  Company Number: RU-ACTAVIS-2015-26198

PATIENT
  Age: 86 Year
  Sex: Female

DRUGS (5)
  1. VALZ [Suspect]
     Active Substance: VALSARTAN
     Indication: HYPERTENSION
     Dosage: 160 MG, DAILY
     Route: 065
  2. TENZOTRAN [Suspect]
     Active Substance: MOXONIDINE
     Indication: HYPERTENSION
     Dosage: 0.4 MG, UNKNOWN
     Route: 048
  3. DIUVER [Suspect]
     Active Substance: TORSEMIDE
     Indication: HYPERTENSION
     Dosage: 5 MG, DAILY
     Route: 065
  4. MOXONIDINE [Suspect]
     Active Substance: MOXONIDINE
     Indication: HYPERTENSION
     Dosage: UNK UNK, UNK
     Route: 065
  5. NIFECARD XL [Suspect]
     Active Substance: NIFEDIPINE
     Indication: HYPERTENSION
     Dosage: 60 MG, DAILY
     Route: 065

REACTIONS (5)
  - Hypertensive crisis [Recovered/Resolved]
  - Blood pressure fluctuation [Not Recovered/Not Resolved]
  - Off label use [None]
  - Wrong drug administered [Unknown]
  - Drug ineffective [Recovered/Resolved]

NARRATIVE: CASE EVENT DATE: 20150725
